FAERS Safety Report 4680945-8 (Version None)
Quarter: 2005Q2

REPORT INFORMATION
  Report Type: 
  Country: None (occurrence: None)
  Receive Date: 20050601
  Receipt Date: 20050601
  Transmission Date: 20051028
  Serious: No
  Sender: FDA-Public Use
  Company Number: None

PATIENT
  Sex: Female
  Weight: 45 kg

DRUGS (4)
  1. EPIRUBICIN [Suspect]
     Indication: GASTRIC CANCER
     Dates: start: 20050207
  2. CISPLATIN [Suspect]
  3. FLUOROURACIL [Suspect]
  4. RADIOTHERAPY [Suspect]

REACTIONS (2)
  - ABDOMINAL PAIN LOWER [None]
  - OVARIAN CYST [None]
